FAERS Safety Report 16001441 (Version 1)
Quarter: 2019Q1

REPORT INFORMATION
  Report Type: Spontaneous
  Country: CA (occurrence: CA)
  Receive Date: 20190225
  Receipt Date: 20190225
  Transmission Date: 20190418
  Serious: Yes (Other)
  Sender: FDA-Public Use
  Company Number: CA-ALLERGAN-1905960US

PATIENT
  Age: 78 Year
  Sex: Male

DRUGS (2)
  1. COMBIGAN [Suspect]
     Active Substance: BRIMONIDINE TARTRATE\TIMOLOL MALEATE
     Indication: INTRAOCULAR PRESSURE TEST ABNORMAL
     Dosage: UNK, Q12H
     Route: 047
     Dates: start: 200808
  2. TRAVATAN [Suspect]
     Active Substance: TRAVOPROST
     Indication: INTRAOCULAR PRESSURE TEST ABNORMAL
     Dosage: UNK
     Route: 065
     Dates: start: 200808

REACTIONS (5)
  - Skin lesion [Unknown]
  - Abdominal pain [Unknown]
  - Prostatic mass [Unknown]
  - Cataract [Not Recovered/Not Resolved]
  - Large intestine polyp [Unknown]
